FAERS Safety Report 26067207 (Version 1)
Quarter: 2025Q4

REPORT INFORMATION
  Report Type: Spontaneous
  Country: US (occurrence: US)
  Receive Date: 20251119
  Receipt Date: 20251119
  Transmission Date: 20260118
  Serious: No
  Sender: BRISTOL-MYERS SQUIBB COMPANY
  Company Number: US-BRISTOL-MYERS SQUIBB COMPANY-2025-156512

PATIENT
  Age: 45 Year

DRUGS (1)
  1. ZEPOSIA [Suspect]
     Active Substance: OZANIMOD HYDROCHLORIDE
     Indication: Multiple sclerosis
     Route: 048
     Dates: start: 202410

REACTIONS (5)
  - Diarrhoea [Unknown]
  - Headache [Unknown]
  - Back pain [Unknown]
  - Neck pain [Unknown]
  - Vomiting [Unknown]

NARRATIVE: CASE EVENT DATE: 20251014
